FAERS Safety Report 14967658 (Version 2)
Quarter: 2019Q4

REPORT INFORMATION
  Report Type: Spontaneous
  Country: HU (occurrence: HU)
  Receive Date: 20180604
  Receipt Date: 20191217
  Transmission Date: 20200122
  Serious: Yes (Hospitalization)
  Sender: FDA-Public Use
  Company Number: HU-ROCHE-2133796

PATIENT
  Age: 12 Year
  Sex: Female

DRUGS (3)
  1. RUBOPHEN [Concomitant]
  2. CLONAZEPAM. [Suspect]
     Active Substance: CLONAZEPAM
     Indication: PRODUCT USED FOR UNKNOWN INDICATION
     Route: 065
  3. ALGOPYRIN [METAMIZOLE SODIUM] [Concomitant]

REACTIONS (17)
  - Dizziness [Recovered/Resolved]
  - Head injury [Recovered/Resolved]
  - Headache [Recovered/Resolved]
  - Incoherent [Recovered/Resolved]
  - Pallor [Recovered/Resolved]
  - Overdose [Unknown]
  - Drug abuse [Unknown]
  - Gait disturbance [Recovered/Resolved]
  - Asthenia [Recovered/Resolved]
  - Psychomotor retardation [Recovered/Resolved]
  - Peripheral coldness [Recovered/Resolved]
  - Confusional state [Recovered/Resolved]
  - Toxicity to various agents [Recovered/Resolved]
  - Vision blurred [Recovered/Resolved]
  - Fall [Recovered/Resolved]
  - Bradycardia [Recovered/Resolved]
  - Electroencephalogram abnormal [Recovered/Resolved]
